FAERS Safety Report 21387728 (Version 1)
Quarter: 2022Q3

REPORT INFORMATION
  Report Type: Spontaneous
  Country: CN (occurrence: CN)
  Receive Date: 20220928
  Receipt Date: 20220928
  Transmission Date: 20221027
  Serious: Yes (Other)
  Sender: FDA-Public Use
  Company Number: CN-UCBSA-2022056253

PATIENT
  Age: 31 Year
  Sex: Male

DRUGS (7)
  1. CETIRIZINE HYDROCHLORIDE [Suspect]
     Active Substance: CETIRIZINE HYDROCHLORIDE
     Indication: Urticaria
     Dosage: 1 DOSAGE FORM, ONCE DAILY (QD)
     Route: 048
     Dates: start: 20200921, end: 20201004
  2. ETIMICIN SULFATE [Suspect]
     Active Substance: ETIMICIN SULFATE
     Indication: Infection
     Dosage: 100 MILLIGRAM, 2X/DAY (BID)
     Route: 041
     Dates: start: 20200921, end: 20200930
  3. SODIUM CHLORIDE [Concomitant]
     Active Substance: SODIUM CHLORIDE
     Indication: Product used for unknown indication
     Dosage: 100 MILLILITER, ONCE DAILY (QD)
     Route: 041
     Dates: start: 20200921, end: 20200924
  4. SODIUM CHLORIDE [Concomitant]
     Active Substance: SODIUM CHLORIDE
     Dosage: 100 MILLILITER, 2X/DAY (BID)
     Route: 041
     Dates: start: 20200921, end: 20200930
  5. SODIUM CHLORIDE [Concomitant]
     Active Substance: SODIUM CHLORIDE
     Dosage: 100 MILLILITER, ONCE DAILY (QD)
     Route: 065
     Dates: start: 20200924, end: 20200927
  6. BETAMETHASONE SODIUM PHOSPHATE [Concomitant]
     Active Substance: BETAMETHASONE SODIUM PHOSPHATE
     Indication: Inflammation
     Dosage: 8 MILLIGRAM, ONCE DAILY (QD)
     Route: 065
     Dates: start: 20200921, end: 20200924
  7. BETAMETHASONE SODIUM PHOSPHATE [Concomitant]
     Active Substance: BETAMETHASONE SODIUM PHOSPHATE
     Indication: Hypersensitivity
     Dosage: 4 MILLIGRAM, ONCE DAILY (QD)
     Route: 041
     Dates: start: 20200924, end: 20200927

REACTIONS (1)
  - Liver injury [Unknown]

NARRATIVE: CASE EVENT DATE: 20200927
